FAERS Safety Report 6828249-9 (Version None)
Quarter: 2010Q3

REPORT INFORMATION
  Report Type: 
  Country: None (occurrence: None)
  Receive Date: 20100709
  Receipt Date: 20070201
  Transmission Date: 20110219
  Serious: No
  Sender: FDA-Public Use
  Company Number: US-PFIZER INC-2007009622

PATIENT
  Sex: Female
  Weight: 72.57 kg

DRUGS (6)
  1. CHANTIX [Suspect]
     Indication: SMOKING CESSATION THERAPY
     Dates: start: 20070126, end: 20070129
  2. DARVOCET [Concomitant]
     Indication: BACK PAIN
  3. VYTORIN [Concomitant]
  4. NEXIUM [Concomitant]
  5. ZYRTEC [Concomitant]
     Indication: SINUS DISORDER
  6. LORAZEPAM [Concomitant]
     Indication: INSOMNIA

REACTIONS (3)
  - HEADACHE [None]
  - INSOMNIA [None]
  - NAUSEA [None]
